FAERS Safety Report 9434739 (Version 1)
Quarter: 2013Q3

REPORT INFORMATION
  Report Type: Spontaneous
  Country: US (occurrence: US)
  Receive Date: 20130801
  Receipt Date: 20130801
  Transmission Date: 20140515
  Serious: Yes (Life-Threatening)
  Sender: FDA-Public Use
  Company Number: 2013SP002156

PATIENT
  Sex: Female

DRUGS (3)
  1. LUNESTA [Suspect]
     Indication: PRODUCT USED FOR UNKNOWN INDICATION
     Route: 048
     Dates: start: 200903, end: 200903
  2. LUNESTA [Suspect]
     Indication: PRODUCT USED FOR UNKNOWN INDICATION
     Route: 048
     Dates: start: 2007, end: 200903
  3. AMBIEN [Concomitant]
     Indication: PRODUCT USED FOR UNKNOWN INDICATION
     Dates: end: 201103

REACTIONS (4)
  - Suicide attempt [Recovered/Resolved with Sequelae]
  - Intentional overdose [Recovered/Resolved]
  - Gastritis [Recovered/Resolved]
  - Dysgeusia [Not Recovered/Not Resolved]
